FAERS Safety Report 14670249 (Version 1)
Quarter: 2018Q1

REPORT INFORMATION
  Report Type: Spontaneous
  Country: CA (occurrence: CA)
  Receive Date: 20180322
  Receipt Date: 20180322
  Transmission Date: 20180509
  Serious: Yes (Disabling)
  Sender: FDA-Public Use
  Company Number: CA-BAYER-2018-051734

PATIENT
  Age: 39 Year
  Sex: Female
  Weight: 52 kg

DRUGS (2)
  1. MIRENA [Suspect]
     Active Substance: LEVONORGESTREL
     Indication: CONTRACEPTION
     Dosage: 20 MCG/24HR, CONT
     Route: 015
  2. MIRENA [Suspect]
     Active Substance: LEVONORGESTREL
     Indication: CONTRACEPTION

REACTIONS (21)
  - Hypertrichosis [Unknown]
  - Hypoaesthesia [Unknown]
  - Premenstrual headache [Unknown]
  - Abdominal distension [Unknown]
  - Breast cyst [Unknown]
  - Eczema [Unknown]
  - Headache [Unknown]
  - Loss of libido [Unknown]
  - Breast pain [Unknown]
  - Fatigue [Unknown]
  - Night sweats [Unknown]
  - Vertigo [Unknown]
  - Menstruation irregular [Unknown]
  - Irritability [Unknown]
  - Dysmenorrhoea [Unknown]
  - Depression [Unknown]
  - Polymenorrhoea [Unknown]
  - Ovarian cyst [Unknown]
  - Pelvic discomfort [Unknown]
  - Ovulation pain [Unknown]
  - Back pain [Unknown]
